FAERS Safety Report 7233266-3 (Version None)
Quarter: 2011Q1

REPORT INFORMATION
  Report Type: 
  Country: None (occurrence: None)
  Receive Date: 20110106
  Receipt Date: 20101230
  Transmission Date: 20110831
  Serious: No
  Sender: FDA-Public Use
  Company Number: 2010-01064

PATIENT
  Age: 90 Year
  Sex: Female
  Weight: 49.8957 kg

DRUGS (4)
  1. LEVOTHYROXINE SODIUM [Concomitant]
  2. METHOTREXATE [Concomitant]
  3. LESCOL XL [Concomitant]
  4. ZICAM COLD REMEDY ORAL MIST [Suspect]
     Dosage: Q 3 HRS X 3 DAYS
     Dates: start: 20101227

REACTIONS (1)
  - AGEUSIA [None]
